FAERS Safety Report 5920221-6 (Version None)
Quarter: 2008Q4

REPORT INFORMATION
  Report Type: 
  Country: None (occurrence: None)
  Receive Date: 20081016
  Receipt Date: 20080228
  Transmission Date: 20090506
  Serious: No
  Sender: FDA-Public Use
  Company Number: A0708688A

PATIENT
  Age: 4 Year
  Sex: Male

DRUGS (2)
  1. CEFTIN [Suspect]
     Indication: DRUG USE FOR UNKNOWN INDICATION
     Dosage: 5ML TWICE PER DAY
     Route: 048
     Dates: start: 20080206
  2. NO CONCURRENT MEDICATION [Concomitant]

REACTIONS (2)
  - PRODUCT QUALITY ISSUE [None]
  - VOMITING [None]
